FAERS Safety Report 15188639 (Version 2)
Quarter: 2018Q3

REPORT INFORMATION
  Report Type: Spontaneous
  Country: US (occurrence: US)
  Receive Date: 20180724
  Receipt Date: 20180725
  Transmission Date: 20181010
  Serious: No
  Sender: FDA-Public Use
  Company Number: US-PFIZER INC-2018295186

PATIENT
  Age: 52 Year
  Sex: Female
  Weight: 46.26 kg

DRUGS (1)
  1. NEURONTIN [Suspect]
     Active Substance: GABAPENTIN
     Indication: SYSTEMIC LUPUS ERYTHEMATOSUS
     Dosage: 600 MG, 2X/DAY (2 TABLETS IN THE MORNING AND 2 TABLETS AT NIGHT)
     Route: 048

REACTIONS (1)
  - Drug ineffective for unapproved indication [Unknown]
